FAERS Safety Report 16984431 (Version 2)
Quarter: 2020Q1

REPORT INFORMATION
  Report Type: Spontaneous
  Country: US (occurrence: US)
  Receive Date: 20191101
  Receipt Date: 20200310
  Transmission Date: 20200409
  Serious: No
  Sender: FDA-Public Use
  Company Number: US-FARMAPROD-201909-1354

PATIENT
  Age: 84 Year
  Sex: Female

DRUGS (18)
  1. LEVOTHYROXINE. [Concomitant]
     Active Substance: LEVOTHYROXINE
  2. TRIAMCINOLONE [Concomitant]
     Active Substance: TRIAMCINOLONE
  3. MOTRIN [Concomitant]
     Active Substance: IBUPROFEN
  4. FLUORIDE [Concomitant]
     Active Substance: SODIUM FLUORIDE\STANNOUS FLUORIDE
  5. SYSTANE (HYPROMELLOSE 2910 (4000 MPA.S)) [Concomitant]
     Active Substance: HYPROMELLOSE 2910 (4000 MPA.S)
  6. REFRESH ADVANCE [Concomitant]
  7. OCUSOFT [Concomitant]
  8. VITAMINS [Concomitant]
     Active Substance: VITAMINS
  9. ARIPIPRAZOLE. [Concomitant]
     Active Substance: ARIPIPRAZOLE
  10. METOPROLOL TARTRATE. [Concomitant]
     Active Substance: METOPROLOL TARTRATE
  11. HYDROCORTISONE. [Concomitant]
     Active Substance: HYDROCORTISONE
  12. PREMARIN [Concomitant]
     Active Substance: ESTROGENS, CONJUGATED
     Route: 067
  13. AMLODIPINE [Concomitant]
     Active Substance: AMLODIPINE BESYLATE
  14. AZELASTINE. [Concomitant]
     Active Substance: AZELASTINE HYDROCHLORIDE
     Dosage: DOSAGE: 2 SPRAYS/DAY
     Route: 045
  15. REFRESH ULTRA [Concomitant]
     Active Substance: GLYCERIN\POLYSORBATE 80
  16. MIRALAX [Concomitant]
     Active Substance: POLYETHYLENE GLYCOL 3350
  17. OXERVATE [Suspect]
     Active Substance: CENEGERMIN-BKBJ
     Indication: NEUROTROPHIC KERATOPATHY
     Route: 047
     Dates: start: 20190730, end: 20190923
  18. ATORVASTATIN [Concomitant]
     Active Substance: ATORVASTATIN

REACTIONS (6)
  - Product dose omission [Unknown]
  - Eye pain [Recovered/Resolved]
  - Product quality issue [Unknown]
  - Photophobia [Recovered/Resolved]
  - Swelling of eyelid [Recovered/Resolved]
  - Ocular discomfort [Unknown]

NARRATIVE: CASE EVENT DATE: 20190909
